FAERS Safety Report 5346595-5 (Version None)
Quarter: 2007Q2

REPORT INFORMATION
  Report Type: 
  Country: None (occurrence: None)
  Receive Date: 20070605
  Receipt Date: 20070525
  Transmission Date: 20071010
  Serious: Yes (Other)
  Sender: FDA-Public Use
  Company Number: AU-PFIZER INC-2007032615

PATIENT
  Sex: Female

DRUGS (11)
  1. GABAPENTIN [Suspect]
     Indication: SCIATICA
  2. ALL OTHER THERAPEUTIC PRODUCTS [Suspect]
     Dates: start: 20070312
  3. BETALOC [Concomitant]
  4. MINIPRESS [Concomitant]
  5. ISORDIL [Concomitant]
  6. LASIX [Concomitant]
  7. MIDAMOR [Concomitant]
  8. PREMARIN [Concomitant]
  9. LUVOX [Concomitant]
  10. EPILIM [Concomitant]
  11. TEGRETOL [Concomitant]

REACTIONS (5)
  - OEDEMA PERIPHERAL [None]
  - PAIN IN EXTREMITY [None]
  - PHARYNGEAL MASS [None]
  - PRURITUS [None]
  - WHEEZING [None]
